FAERS Safety Report 17177976 (Version 2)
Quarter: 2019Q4

REPORT INFORMATION
  Report Type: Spontaneous
  Country: JP (occurrence: JP)
  Receive Date: 20191219
  Receipt Date: 20191231
  Transmission Date: 20200122
  Serious: Yes (Disabling, Other)
  Sender: FDA-Public Use
  Company Number: JP-AMGEN-JPNSP2019193936

PATIENT
  Age: 51 Year
  Sex: Female
  Weight: 50 kg

DRUGS (16)
  1. EPIRUBICIN HYDROCHLORIDE. [Concomitant]
     Active Substance: EPIRUBICIN HYDROCHLORIDE
     Dosage: 100 MG/M2
     Route: 041
     Dates: start: 20141021, end: 20141202
  2. ENDOXAN [Concomitant]
     Active Substance: CYCLOPHOSPHAMIDE
     Dosage: 500 MILLIGRAM/SQ. METER
     Route: 041
     Dates: start: 20141021, end: 20141202
  3. TASUOMIN [Concomitant]
     Active Substance: TAMOXIFEN CITRATE
     Dosage: UNK UNK, QD
     Route: 048
     Dates: start: 20141216, end: 201704
  4. LANSOPRAZOLE. [Concomitant]
     Active Substance: LANSOPRAZOLE
     Dosage: UNK
     Route: 065
  5. ROHYPNOL [Concomitant]
     Active Substance: FLUNITRAZEPAM
     Indication: DEPRESSION
     Dosage: UNK
     Route: 065
  6. 5-FU [Concomitant]
     Active Substance: FLUOROURACIL
     Dosage: 500 MILLIGRAM/SQ. METER
     Route: 041
     Dates: start: 20141021, end: 20141202
  7. SLOW-K [Concomitant]
     Active Substance: POTASSIUM CHLORIDE
     Dosage: UNK
     Route: 065
  8. RANMARK [Suspect]
     Active Substance: DENOSUMAB
     Indication: METASTASES TO SPINE
     Dosage: UNK
     Route: 065
     Dates: start: 201509
  9. WYPAX [Concomitant]
     Active Substance: LORAZEPAM
     Indication: DEPRESSION
     Dosage: UNK
     Route: 065
  10. LOXONIN [Concomitant]
     Active Substance: LOXOPROFEN SODIUM
     Dosage: UNK
     Route: 065
  11. MEILAX [Concomitant]
     Active Substance: ETHYL LOFLAZEPATE
     Indication: DEPRESSION
     Dosage: UNK
     Route: 065
  12. TRAZODONE [Concomitant]
     Active Substance: TRAZODONE HYDROCHLORIDE
     Dosage: UNK
     Route: 065
  13. SERTRALINE [Concomitant]
     Active Substance: SERTRALINE HYDROCHLORIDE
     Indication: DEPRESSION
     Dosage: UNK
     Route: 065
  14. RIVOTRIL [Concomitant]
     Active Substance: CLONAZEPAM
     Indication: DEPRESSION
     Dosage: UNK
     Route: 065
  15. DENOTAS [Concomitant]
     Active Substance: CALCIUM CARBONATE\CHOLECALCIFEROL\MAGNESIUM CARBONATE
     Dosage: UNK
     Route: 065
  16. HANGEKOBOKUTO [Concomitant]
     Active Substance: HERBALS
     Indication: DEPRESSION
     Dosage: UNK
     Route: 065

REACTIONS (2)
  - Depression [Recovered/Resolved]
  - Osteonecrosis of jaw [Recovered/Resolved with Sequelae]

NARRATIVE: CASE EVENT DATE: 201412
